FAERS Safety Report 8315025-3 (Version None)
Quarter: 2012Q2

REPORT INFORMATION
  Report Type: 
  Country: None (occurrence: None)
  Receive Date: 20120426
  Receipt Date: 20120414
  Transmission Date: 20120825
  Serious: Yes (Death)
  Sender: FDA-Public Use
  Company Number: PL-BRISTOL-MYERS SQUIBB COMPANY-16475790

PATIENT
  Age: 22 Year
  Sex: Female
  Weight: 50 kg

DRUGS (1)
  1. YERVOY [Suspect]
     Indication: METASTATIC MALIGNANT MELANOMA
     Dosage: 4 DOSES OF IPILIMUMAB, 3MG/KG, 2ND DOSE 20JAN12;3RD DOSE 09FEB12; 4TH DOSE 01MAR12
     Route: 042
     Dates: start: 20111230

REACTIONS (1)
  - NEOPLASM MALIGNANT [None]
